FAERS Safety Report 14649288 (Version 1)
Quarter: 2018Q1

REPORT INFORMATION
  Report Type: Spontaneous
  Country: US (occurrence: US)
  Receive Date: 20180316
  Receipt Date: 20180316
  Transmission Date: 20180509
  Serious: Yes (Hospitalization)
  Sender: FDA-Public Use
  Company Number: US-JNJFOC-20180313442

PATIENT
  Age: 67 Year
  Sex: Female
  Weight: 92.53 kg

DRUGS (20)
  1. XARELTO [Suspect]
     Active Substance: RIVAROXABAN
     Indication: CEREBROVASCULAR ACCIDENT PROPHYLAXIS
     Route: 048
  2. BISOPROLOL FUMARATE. [Concomitant]
     Active Substance: BISOPROLOL FUMARATE
     Route: 048
  3. GERITOL COMPLETE [Concomitant]
     Route: 048
  4. GRALISE [Concomitant]
     Active Substance: GABAPENTIN
     Route: 048
  5. IRON [Concomitant]
     Active Substance: IRON
     Route: 048
  6. XARELTO [Suspect]
     Active Substance: RIVAROXABAN
     Indication: ATRIAL FIBRILLATION
     Route: 048
  7. BUMETANIDE. [Concomitant]
     Active Substance: BUMETANIDE
     Route: 048
  8. LEVOTHYROXINE. [Concomitant]
     Active Substance: LEVOTHYROXINE
     Route: 048
  9. LORAZEPAM. [Concomitant]
     Active Substance: LORAZEPAM
     Route: 048
  10. LISINOPRIL. [Concomitant]
     Active Substance: LISINOPRIL
     Route: 048
  11. PRAMIPEXOLE. [Concomitant]
     Active Substance: PRAMIPEXOLE
     Route: 048
  12. ASPIRIN. [Concomitant]
     Active Substance: ASPIRIN
     Indication: CORONARY ARTERY DISEASE
     Route: 048
  13. HYDRALAZINE [Concomitant]
     Active Substance: HYDRALAZINE HYDROCHLORIDE
     Route: 048
  14. NITROGLYCERINE [Concomitant]
     Active Substance: NITROGLYCERIN
     Indication: CHEST PAIN
     Dosage: EVERY 5MIN X3 PRN
     Route: 060
  15. MULTAQ [Concomitant]
     Active Substance: DRONEDARONE
     Route: 048
  16. VISINE [Concomitant]
     Active Substance: TETRAHYDROZOLINE HYDROCHLORIDE
     Route: 047
  17. ATORVASTATIN [Concomitant]
     Active Substance: ATORVASTATIN
     Route: 048
  18. METOLAZONE. [Concomitant]
     Active Substance: METOLAZONE
     Route: 048
  19. NEOMYCIN POLYMIXIN [Concomitant]
     Active Substance: NEOMYCIN\POLYMYXIN
     Dosage: 3.5-10000 1MG/ML-UNIT/ML % DROPS SUSPENSION
     Route: 050
  20. NOVOLIN [Concomitant]
     Active Substance: INSULIN HUMAN
     Dosage: 50UNITS IN AM, 25UNITS IN PM
     Route: 065

REACTIONS (2)
  - Atrial fibrillation [Unknown]
  - Influenza [Unknown]

NARRATIVE: CASE EVENT DATE: 201801
